FAERS Safety Report 20859422 (Version 2)
Quarter: 2022Q2

REPORT INFORMATION
  Report Type: Report from Study
  Country: CH (occurrence: CH)
  Receive Date: 20220523
  Receipt Date: 20220531
  Transmission Date: 20220721
  Serious: Yes (Disabling, Other)
  Sender: FDA-Public Use
  Company Number: CH-BEH-2020122209

PATIENT
  Age: 34 Year
  Sex: Male

DRUGS (15)
  1. HIZENTRA [Suspect]
     Active Substance: HUMAN IMMUNOGLOBULIN G
     Indication: Multifocal motor neuropathy
     Dosage: 55 MILLILITER, BIW (3 SITES OF INJECTION)
     Route: 058
     Dates: start: 20200903
  2. HIZENTRA [Suspect]
     Active Substance: HUMAN IMMUNOGLOBULIN G
     Dosage: 1 GRAM
     Route: 058
  3. HIZENTRA [Suspect]
     Active Substance: HUMAN IMMUNOGLOBULIN G
     Dosage: 10 GRAM
     Route: 058
  4. HIZENTRA [Suspect]
     Active Substance: HUMAN IMMUNOGLOBULIN G
     Dosage: 55 MILLILITER, BIW (3 SITES OF INJECTION)
     Route: 058
  5. HIZENTRA [Suspect]
     Active Substance: HUMAN IMMUNOGLOBULIN G
     Dosage: 50 MILLILITER, BIW (2 SITES OF INJECTION)
     Route: 058
  6. HIZENTRA [Suspect]
     Active Substance: HUMAN IMMUNOGLOBULIN G
     Dosage: 50 MILLILITER, TOT
     Route: 058
     Dates: start: 20210909, end: 20210909
  7. HIZENTRA [Suspect]
     Active Substance: HUMAN IMMUNOGLOBULIN G
     Dosage: 50 MILLILITER, TOT
     Route: 058
     Dates: start: 20210913, end: 20210913
  8. HIZENTRA [Suspect]
     Active Substance: HUMAN IMMUNOGLOBULIN G
     Dosage: 50 MILLILITER, TOT
     Route: 058
     Dates: start: 20210918, end: 20210918
  9. HIZENTRA [Suspect]
     Active Substance: HUMAN IMMUNOGLOBULIN G
     Dosage: 50 MILLILITER, TOT
     Route: 058
     Dates: start: 20210921, end: 20210921
  10. HIZENTRA [Suspect]
     Active Substance: HUMAN IMMUNOGLOBULIN G
     Dosage: UNK
     Route: 058
  11. HIZENTRA [Suspect]
     Active Substance: HUMAN IMMUNOGLOBULIN G
     Dosage: 10 GRAM, BIW
     Route: 058
     Dates: start: 202202
  12. HIZENTRA [Suspect]
     Active Substance: HUMAN IMMUNOGLOBULIN G
     Dosage: 10 GRAM, BIW
     Route: 058
     Dates: start: 202202
  13. HIZENTRA [Suspect]
     Active Substance: HUMAN IMMUNOGLOBULIN G
     Dosage: 10 GRAM, BIW
     Route: 058
     Dates: start: 202202
  14. HIZENTRA [Suspect]
     Active Substance: HUMAN IMMUNOGLOBULIN G
     Dosage: 10 GRAM, BIW
     Route: 058
     Dates: start: 2022
  15. HIZENTRA [Suspect]
     Active Substance: HUMAN IMMUNOGLOBULIN G
     Dosage: 10 GRAM, QW
     Route: 058
     Dates: start: 2022

REACTIONS (27)
  - Infusion site pruritus [Unknown]
  - Infusion site swelling [Unknown]
  - Infusion site erythema [Unknown]
  - Infusion site pain [Unknown]
  - Infusion site swelling [Unknown]
  - Discomfort [Unknown]
  - Infusion site swelling [Unknown]
  - Infusion site erythema [Unknown]
  - Infusion site erythema [Unknown]
  - Infusion site swelling [Unknown]
  - Infusion site swelling [Recovered/Resolved]
  - Infusion site erythema [Recovered/Resolved]
  - SARS-CoV-2 test positive [Unknown]
  - Oropharyngeal pain [Unknown]
  - Fatigue [Unknown]
  - Infusion site swelling [Recovered/Resolved]
  - Infusion site haemorrhage [Recovered/Resolved]
  - Hypoaesthesia [Recovered/Resolved]
  - No adverse event [Unknown]
  - Off label use [Unknown]
  - Arthralgia [Recovered/Resolved]
  - Pain in extremity [Recovered/Resolved]
  - Paraesthesia [Recovered/Resolved]
  - Drug ineffective for unapproved indication [Recovered/Resolved]
  - Intentional dose omission [Recovered/Resolved]
  - Muscular weakness [Unknown]
  - Intentional product misuse [Unknown]

NARRATIVE: CASE EVENT DATE: 20200901
